FAERS Safety Report 6646066-X (Version None)
Quarter: 2010Q1

REPORT INFORMATION
  Report Type: 
  Country: None (occurrence: None)
  Receive Date: 20100318
  Receipt Date: 20100304
  Transmission Date: 20100710
  Serious: Yes (Hospitalization)
  Sender: FDA-Public Use
  Company Number: A-NJ2010-33425

PATIENT
  Age: 81 Year
  Sex: Female

DRUGS (4)
  1. TRACLEER [Suspect]
     Indication: PULMONARY ARTERIAL HYPERTENSION
     Dosage: 62.5 MG, QD, ORAL; 62.5 MG, BID, ORAL; 125 MG, BID, ORAL; 62.5 MG. BID, ORAL
     Route: 048
     Dates: start: 20090221, end: 20090413
  2. TRACLEER [Suspect]
     Indication: PULMONARY ARTERIAL HYPERTENSION
     Dosage: 62.5 MG, QD, ORAL; 62.5 MG, BID, ORAL; 125 MG, BID, ORAL; 62.5 MG. BID, ORAL
     Route: 048
     Dates: start: 20090414, end: 20090521
  3. TRACLEER [Suspect]
     Indication: PULMONARY ARTERIAL HYPERTENSION
     Dosage: 62.5 MG, QD, ORAL; 62.5 MG, BID, ORAL; 125 MG, BID, ORAL; 62.5 MG. BID, ORAL
     Route: 048
     Dates: start: 20090610, end: 20090615
  4. TRACLEER [Suspect]
     Indication: PULMONARY ARTERIAL HYPERTENSION
     Dosage: 62.5 MG, QD, ORAL; 62.5 MG, BID, ORAL; 125 MG, BID, ORAL; 62.5 MG. BID, ORAL
     Route: 048
     Dates: start: 20090616

REACTIONS (6)
  - ARTHRALGIA [None]
  - DYSPNOEA [None]
  - DYSSTASIA [None]
  - FATIGUE [None]
  - MEDICAL DEVICE REMOVAL [None]
  - POST PROCEDURAL COMPLICATION [None]
